FAERS Safety Report 5362277-8 (Version None)
Quarter: 2007Q2

REPORT INFORMATION
  Report Type: 
  Country: None (occurrence: None)
  Receive Date: 20070619
  Receipt Date: 20070615
  Transmission Date: 20071010
  Serious: Yes (Death)
  Sender: FDA-Public Use
  Company Number: A0625668A

PATIENT
  Age: 46 Year
  Sex: Male
  Weight: 77.3 kg

DRUGS (7)
  1. PAXIL [Suspect]
     Indication: ANXIETY
     Route: 048
  2. PAXIL CR [Suspect]
     Indication: ANXIETY
     Dosage: 37.5MG PER DAY
     Route: 048
  3. HYDROCODONE BITARTRATE [Suspect]
  4. ETHANOL [Suspect]
  5. NORVASC [Concomitant]
  6. VIAGRA [Concomitant]
  7. TOPROL-XL [Concomitant]
     Dates: end: 20011001

REACTIONS (4)
  - ALCOHOL POISONING [None]
  - COMPLETED SUICIDE [None]
  - DRUG TOXICITY [None]
  - HEAD INJURY [None]
